FAERS Safety Report 12340088 (Version 2)
Quarter: 2016Q2

REPORT INFORMATION
  Report Type: Spontaneous
  Country: CA (occurrence: CA)
  Receive Date: 20160506
  Receipt Date: 20160526
  Transmission Date: 20160815
  Serious: Yes (Disabling)
  Sender: FDA-Public Use
  Company Number: CA-ASTRAZENECA-2016SE41084

PATIENT
  Age: 65 Year
  Sex: Female

DRUGS (1)
  1. TUDORZA GENUAIR [Suspect]
     Active Substance: ACLIDINIUM BROMIDE
     Route: 055

REACTIONS (3)
  - Drug dose omission [Unknown]
  - Device defective [Unknown]
  - Mobility decreased [Unknown]
